FAERS Safety Report 8459433-9 (Version None)
Quarter: 2012Q2

REPORT INFORMATION
  Report Type: 
  Country: None (occurrence: None)
  Receive Date: 20120622
  Receipt Date: 20120618
  Transmission Date: 20120825
  Serious: Yes (Hospitalization, Other)
  Sender: FDA-Public Use
  Company Number: CA-PFIZER INC-2012121394

PATIENT
  Sex: Male
  Weight: 96 kg

DRUGS (11)
  1. TEMSIROLIMUS [Suspect]
     Indication: METASTATIC RENAL CELL CARCINOMA
     Dosage: 25 MG, WEEKLY
     Route: 042
     Dates: start: 20080401
  2. FERROUS SULFATE TAB [Concomitant]
     Dosage: 1 DF, 1X/DAY
  3. ASPIRIN [Concomitant]
     Dosage: 325 MG, 1X/DAY
  4. METFORMIN [Concomitant]
     Dosage: 500 MG, 1X/DAY
  5. NORVASC [Concomitant]
     Dosage: 5 MG, 1X/DAY
  6. ZOPICLONE [Concomitant]
     Dosage: 7.5 MG, 1X/DAY AT BEDTIME
  7. CRESTOR [Concomitant]
     Dosage: 10 MG, 1X/DAY
  8. SYNTHROID [Concomitant]
     Dosage: 100 UG, 1X/DAY
  9. FENOFIBRATE [Concomitant]
     Dosage: 200 MG, 1X/DAY
  10. GLICLAZIDE [Concomitant]
     Dosage: 90 MG, 1X/DAY
  11. NEXIUM [Concomitant]
     Dosage: 40 MG, 2X/DAY

REACTIONS (5)
  - OSTEONECROSIS [None]
  - CLUSTER HEADACHE [None]
  - PELVIC PAIN [None]
  - DIABETES MELLITUS [None]
  - ARTHRALGIA [None]
